FAERS Safety Report 4705326-X (Version None)
Quarter: 2005Q2

REPORT INFORMATION
  Report Type: 
  Country: None (occurrence: None)
  Receive Date: 20050628
  Receipt Date: 20050609
  Transmission Date: 20051028
  Serious: Yes (Other)
  Sender: FDA-Public Use
  Company Number: DE_050616152

PATIENT
  Sex: Male

DRUGS (5)
  1. VINCRISTINE SULFATE [Suspect]
     Indication: NON-HODGKIN'S LYMPHOMA
     Dates: start: 20030805, end: 20030101
  2. PREDNISON (PREDNISONE /00044701/) [Concomitant]
  3. RITUXIMAB [Concomitant]
  4. CYCLOPHOSPHAMIDE [Concomitant]
  5. ADRIAMYCIN (DOXORUBICIN /00330901/) [Concomitant]

REACTIONS (3)
  - PALMAR-PLANTAR ERYTHRODYSAESTHESIA SYNDROME [None]
  - PARAESTHESIA [None]
  - POLYNEUROPATHY TOXIC [None]
